FAERS Safety Report 6443231-1 (Version None)
Quarter: 2009Q4

REPORT INFORMATION
  Report Type: 
  Country: None (occurrence: None)
  Receive Date: 20091117
  Receipt Date: 20090928
  Transmission Date: 20100525
  Serious: Yes (Hospitalization)
  Sender: FDA-Public Use
  Company Number: PT-SANOFI-AVENTIS-D01200905338

PATIENT
  Age: 68 Year
  Sex: Female
  Weight: 74 kg

DRUGS (10)
  1. ENOXAPARIN SODIUM [Suspect]
     Dosage: DOSE TEXT: 20 MG
     Route: 058
     Dates: start: 20090731, end: 20090810
  2. PERINDOPRIL [Concomitant]
     Route: 065
     Dates: start: 20090729, end: 20090811
  3. INSULIN [Concomitant]
     Route: 065
     Dates: start: 20090729, end: 20090806
  4. INSULIN [Concomitant]
     Route: 065
     Dates: start: 20090808, end: 20090811
  5. METOCLOPRAMIDE [Concomitant]
     Route: 065
     Dates: start: 20090729, end: 20090811
  6. PENTOXIFILINA BELM [Concomitant]
     Route: 065
     Dates: start: 20090729, end: 20090811
  7. TRAMADOL HCL [Concomitant]
     Route: 065
     Dates: start: 20090729, end: 20090811
  8. PARACETAMOL [Concomitant]
     Route: 065
     Dates: start: 20090730, end: 20090811
  9. CEFAZOLIN [Concomitant]
     Route: 065
     Dates: start: 20090731, end: 20090811
  10. GENTAMICIN [Concomitant]
     Route: 065
     Dates: start: 20090704, end: 20090810

REACTIONS (1)
  - RENAL FAILURE ACUTE [None]
